FAERS Safety Report 7982259-7 (Version None)
Quarter: 2011Q4

REPORT INFORMATION
  Report Type: 
  Country: None (occurrence: None)
  Receive Date: 20111215
  Receipt Date: 20111215
  Transmission Date: 20120403
  Serious: Yes (Hospitalization)
  Sender: FDA-Public Use
  Company Number: None

PATIENT
  Age: 78 Year
  Sex: Female
  Weight: 45.8 kg

DRUGS (2)
  1. BUDESONIDE [Suspect]
     Indication: PNEUMONIA
     Dosage: 1 MG
     Route: 055
  2. BUDESONIDE [Suspect]
     Indication: EMPHYSEMA
     Dosage: 1 MG
     Route: 055

REACTIONS (4)
  - BLOOD PRESSURE INCREASED [None]
  - WHEEZING [None]
  - ERYTHEMA [None]
  - ANXIETY [None]
